FAERS Safety Report 9734156 (Version 7)
Quarter: 2016Q1

REPORT INFORMATION
  Report Type: Spontaneous
  Country: US (occurrence: US)
  Receive Date: 20131205
  Receipt Date: 20160120
  Transmission Date: 20160526
  Serious: Yes (Hospitalization, Disabling, Other)
  Sender: FDA-Public Use
  Company Number: US-009507513-1312USA001890

PATIENT
  Sex: Female
  Weight: 45.35 kg

DRUGS (13)
  1. FOSAMAX [Suspect]
     Active Substance: ALENDRONATE SODIUM
     Indication: OSTEOPOROSIS
     Dosage: 70 MG, QW
     Route: 048
     Dates: start: 2000, end: 20080308
  2. ALENDRONATE SODIUM. [Suspect]
     Active Substance: ALENDRONATE SODIUM
     Dosage: 70 MG, UNKNOWN
     Route: 048
     Dates: start: 20080920, end: 20090915
  3. VITAMINS (UNSPECIFIED) [Concomitant]
     Active Substance: VITAMINS
     Dosage: UNK
     Route: 048
     Dates: start: 1980
  4. MAGNESIUM (UNSPECIFIED) [Concomitant]
     Active Substance: MAGNESIUM
     Dosage: UNK
     Route: 048
     Dates: start: 1980
  5. ALENDRONATE SODIUM. [Suspect]
     Active Substance: ALENDRONATE SODIUM
     Indication: FIBROMYALGIA
  6. KLONOPIN [Concomitant]
     Active Substance: CLONAZEPAM
     Dosage: UNK
     Dates: start: 1999
  7. ZINC (UNSPECIFIED) [Concomitant]
     Dosage: UNK
     Route: 048
     Dates: start: 1980
  8. FOSAMAX [Suspect]
     Active Substance: ALENDRONATE SODIUM
     Indication: FIBROMYALGIA
  9. ALENDRONATE SODIUM. [Suspect]
     Active Substance: ALENDRONATE SODIUM
     Indication: OSTEOPOROSIS
     Dosage: 70 MG, QW
     Route: 048
     Dates: start: 20080308, end: 20120215
  10. CALCIUM (UNSPECIFIED) [Concomitant]
     Active Substance: CALCIUM
     Dosage: UNK
     Route: 048
     Dates: start: 1980
  11. FLEXERIL [Concomitant]
     Active Substance: CYCLOBENZAPRINE HYDROCHLORIDE
     Indication: MYALGIA
     Dosage: UNK
     Dates: start: 2000
  12. KLOR-CON [Concomitant]
     Active Substance: POTASSIUM CHLORIDE
     Indication: BLOOD POTASSIUM DECREASED
     Dosage: UNK
     Route: 048
     Dates: start: 1980, end: 2010
  13. CHOLECALCIFEROL [Concomitant]
     Active Substance: CHOLECALCIFEROL
     Dosage: UNK
     Route: 048
     Dates: start: 1980

REACTIONS (17)
  - Femoral neck fracture [Recovered/Resolved]
  - Hypotension [Recovering/Resolving]
  - Wound [Unknown]
  - Diarrhoea [Unknown]
  - Gastrooesophageal reflux disease [Unknown]
  - Seizure [Unknown]
  - Off label use [Unknown]
  - Hypokalaemia [Unknown]
  - Low turnover osteopathy [Not Recovered/Not Resolved]
  - Depression [Not Recovered/Not Resolved]
  - Blood cholesterol increased [Unknown]
  - Anxiety [Not Recovered/Not Resolved]
  - Hypertension [Unknown]
  - Intramedullary rod insertion [Unknown]
  - Osteoporosis [Not Recovered/Not Resolved]
  - Pain [Not Recovered/Not Resolved]
  - Musculoskeletal pain [Unknown]

NARRATIVE: CASE EVENT DATE: 2000
